FAERS Safety Report 5411286-9 (Version None)
Quarter: 2007Q3

REPORT INFORMATION
  Report Type: 
  Country: None (occurrence: None)
  Receive Date: 20070810
  Receipt Date: 20070802
  Transmission Date: 20080115
  Serious: Yes (Death)
  Sender: FDA-Public Use
  Company Number: US-ROCHE-509843

PATIENT
  Age: 80 Year
  Sex: Female

DRUGS (2)
  1. BONIVA [Suspect]
     Indication: DRUG USE FOR UNKNOWN INDICATION
     Route: 065
     Dates: start: 20060101, end: 20070401
  2. UNSPECIFIED DRUGS [Concomitant]
     Dosage: PATIENT WAS ON ^MANY HEART MEDICATIONS^ NOS.

REACTIONS (1)
  - ATRIOVENTRICULAR BLOCK [None]
